FAERS Safety Report 5921383-7 (Version None)
Quarter: 2008Q4

REPORT INFORMATION
  Report Type: 
  Country: None (occurrence: None)
  Receive Date: 20081014
  Receipt Date: 20081007
  Transmission Date: 20090506
  Serious: Yes (Death)
  Sender: FDA-Public Use
  Company Number: 2008AL011043

PATIENT
  Age: 74 Year
  Sex: Male
  Weight: 108.4097 kg

DRUGS (9)
  1. DIGOXIN [Suspect]
     Indication: HEART RATE ABNORMAL
     Dosage: 0.125 MG, DAILY, PO
     Route: 048
     Dates: start: 19990101, end: 20071205
  2. WARFARIN SODIUM [Concomitant]
  3. TOPROL-XL [Concomitant]
  4. VYTORIN [Concomitant]
  5. FUROSEMIDE [Concomitant]
  6. HYDRALAZINE HCL [Concomitant]
  7. NOVOLOG [Concomitant]
  8. LANTUS [Concomitant]
  9. ULTRAM [Concomitant]

REACTIONS (5)
  - DIZZINESS POSTURAL [None]
  - HYPOTENSION [None]
  - LEG AMPUTATION [None]
  - MYOCARDIAL INFARCTION [None]
  - SOMNOLENCE [None]
